FAERS Safety Report 10273590 (Version 1)
Quarter: 2014Q2

REPORT INFORMATION
  Report Type: Spontaneous
  Country: US (occurrence: None)
  Receive Date: 20140630
  Receipt Date: 20140630
  Transmission Date: 20141212
  Serious: Yes (Life-Threatening)
  Sender: FDA-Public Use
  Company Number: None

PATIENT
  Age: 33 Year
  Sex: Female
  Weight: 70.31 kg

DRUGS (5)
  1. DYMISTA [Suspect]
     Indication: ALLERGY TEST
     Dates: start: 20140627, end: 20140627
  2. CALCIUM + D [Concomitant]
  3. ALIVE! NATURES WAY MULTIVITAMIN [Concomitant]
  4. MULTI VITAMIN [Concomitant]
  5. VITAMIN B12 [Concomitant]

REACTIONS (2)
  - Throat tightness [None]
  - Swelling [None]
